FAERS Safety Report 13612375 (Version 1)
Quarter: 2017Q2

REPORT INFORMATION
  Report Type: Report from Study
  Country: CO (occurrence: CO)
  Receive Date: 20170605
  Receipt Date: 20170605
  Transmission Date: 20170830
  Serious: Yes (Death, Hospitalization)
  Sender: FDA-Public Use
  Company Number: CO-NOVOPROD-547863

PATIENT
  Age: 80 Year
  Sex: Male

DRUGS (1)
  1. NOVORAPID [Suspect]
     Active Substance: INSULIN ASPART
     Indication: TYPE 2 DIABETES MELLITUS
     Dosage: 1.8 IU, TID
     Route: 058
     Dates: start: 2016, end: 20170210

REACTIONS (3)
  - Urinary tract infection [Unknown]
  - Diabetic coma [Fatal]
  - Hypoglycaemia [Unknown]

NARRATIVE: CASE EVENT DATE: 20170209
